FAERS Safety Report 21144993 (Version 4)
Quarter: 2025Q4

REPORT INFORMATION
  Report Type: Spontaneous
  Country: EU (occurrence: EU)
  Receive Date: 20220728
  Receipt Date: 20251011
  Transmission Date: 20260117
  Serious: Yes (Hospitalization, Other)
  Sender: AMGEN
  Company Number: EU-AFSSAPS-RE20221029

PATIENT
  Age: 70 Year
  Sex: Male
  Weight: 94 kg

DRUGS (12)
  1. MVASI [Suspect]
     Active Substance: BEVACIZUMAB-AWWB
     Indication: Hepatocellular carcinoma
     Dosage: 1450 MILLIGRAM, CYCLICAL
     Route: 065
     Dates: start: 20220617
  2. MVASI [Suspect]
     Active Substance: BEVACIZUMAB-AWWB
     Dosage: 25 MILLIGRAM PER MILLILITRE, CYCLICAL
     Route: 065
  3. TECENTRIQ [Suspect]
     Active Substance: ATEZOLIZUMAB
     Indication: Hepatocellular carcinoma
     Dosage: 1200 MILLIGRAM, CYCLICAL
     Route: 040
     Dates: start: 20220617, end: 20220617
  4. BACTRIM [Suspect]
     Active Substance: SULFAMETHOXAZOLE\TRIMETHOPRIM
     Indication: Prostatitis
     Dosage: UNK STRENGTH:40 MG/ML + 8 MG/ML, ORAL SUSPENSION)
     Route: 048
     Dates: start: 20220627, end: 20220710
  5. KARDEGIC [Concomitant]
     Active Substance: ASPIRIN DL-LYSINE
     Dosage: UNK(STRENGTH: 75 MG)
  6. HERBALS\SAW PALMETTO [Concomitant]
     Active Substance: HERBALS\SAW PALMETTO
     Dosage: UNK (STRENGTH: 160 MG)
  7. Metoprolol accord [Concomitant]
     Dosage: UNK (STRENGTH: 100MG)
  8. CHOLECALCIFEROL [Concomitant]
     Active Substance: CHOLECALCIFEROL
     Dosage: UNK (STRENGTH: 50,000 IU)
  9. CRESTOR [Concomitant]
     Active Substance: ROSUVASTATIN CALCIUM
     Dosage: UNK (STRENGTH: 20 MG)
  10. POTASSIUM CHLORIDE [Concomitant]
     Active Substance: POTASSIUM CHLORIDE
     Dosage: UNK (STRENGTH: 1000MG)
  11. Esomeprazole almus [Concomitant]
     Dosage: UNK (STRENGTH: 20 MG)
  12. COVERAM [Concomitant]
     Active Substance: AMLODIPINE\PERINDOPRIL
     Dosage: UNK (STRENGTH: 5 MG)

REACTIONS (2)
  - Immune thrombocytopenia [Not Recovered/Not Resolved]
  - Off label use [Unknown]

NARRATIVE: CASE EVENT DATE: 20220617
